FAERS Safety Report 8878441 (Version 1)
Quarter: 2012Q4

REPORT INFORMATION
  Report Type: 
  Country: US (occurrence: US)
  Receive Date: 20121025
  Receipt Date: 20121025
  Transmission Date: 20130627
  Serious: No
  Sender: FDA-Public Use
  Company Number: US-AMGEN-USASP2012023271

PATIENT
  Age: 57 Year
  Sex: Female

DRUGS (8)
  1. ENBREL [Suspect]
     Indication: PRODUCT USED FOR UNKNOWN INDICATION
     Dosage: 50 mg, qwk
     Route: 058
  2. SIMVASTATIN [Concomitant]
     Dosage: 10 mg, UNK
  3. METHOTREXATE [Concomitant]
     Dosage: 2.5 mg, UNK
  4. FOLIC ACID [Concomitant]
     Dosage: 800 mug, UNK
  5. VITAMIN D /00107901/ [Concomitant]
     Dosage: 1000 IU, UNK
  6. AMLODIPINE [Concomitant]
     Dosage: 10 mg, UNK
  7. LISINOPRIL [Concomitant]
     Dosage: 10 mg, UNK
  8. IBUPROFEN [Concomitant]
     Dosage: 800 mg, UNK

REACTIONS (1)
  - Rhinorrhoea [Unknown]
